FAERS Safety Report 8254725-0 (Version None)
Quarter: 2012Q1

REPORT INFORMATION
  Report Type: 
  Country: None (occurrence: None)
  Receive Date: 20120322
  Receipt Date: 20111215
  Transmission Date: 20120608
  Serious: Yes (Hospitalization)
  Sender: FDA-Public Use
  Company Number: UTC-013582

PATIENT
  Age: 67 Year
  Sex: Male
  Weight: 75 kg

DRUGS (4)
  1. TYVASO [Suspect]
     Indication: PULMONARY ARTERIAL HYPERTENSION
     Dosage: 18 TO 36 MICROGRAMS (4 IN 1 D), INHALATION
     Route: 055
     Dates: start: 20111029
  2. REVATIO [Concomitant]
  3. LETAIRIS [Concomitant]
  4. DIURETICS (DIURETICS) [Concomitant]

REACTIONS (5)
  - ABDOMINAL DISTENSION [None]
  - OEDEMA PERIPHERAL [None]
  - DYSPNOEA [None]
  - FLUID RETENTION [None]
  - PRURITUS [None]
